FAERS Safety Report 4596771-4 (Version None)
Quarter: 2005Q1

REPORT INFORMATION
  Report Type: 
  Country: None (occurrence: None)
  Receive Date: 20050228
  Receipt Date: 20050214
  Transmission Date: 20050727
  Serious: Yes (Other)
  Sender: FDA-Public Use
  Company Number: 2005-0008002

PATIENT
  Age: 24 Year
  Sex: Male

DRUGS (2)
  1. EMTRIVA [Suspect]
     Indication: HIV INFECTION
  2. NEVIRAPINE [Concomitant]

REACTIONS (1)
  - STEVENS-JOHNSON SYNDROME [None]
